FAERS Safety Report 10658483 (Version 1)
Quarter: 2014Q4

REPORT INFORMATION
  Report Type: Report from Study
  Country: US (occurrence: US)
  Receive Date: 20141217
  Receipt Date: 20141217
  Transmission Date: 20150529
  Serious: Yes (Hospitalization)
  Sender: FDA-Public Use
  Company Number: US-ABBVIE-14K-163-1318854-00

PATIENT
  Age: 18 Year
  Sex: Female
  Weight: 65.83 kg

DRUGS (2)
  1. LOESTRIN NOS [Concomitant]
     Active Substance: ETHINYL ESTRADIOL\NORETHINDRONE ACETATE
     Indication: CONTRACEPTION
  2. HUMIRA [Suspect]
     Active Substance: ADALIMUMAB
     Indication: JUVENILE IDIOPATHIC ARTHRITIS
     Route: 058
     Dates: start: 2012, end: 201409

REACTIONS (9)
  - Abasia [Recovered/Resolved]
  - Weight gain poor [Recovered/Resolved]
  - Urinary tract infection [Recovered/Resolved]
  - Juvenile idiopathic arthritis [Recovered/Resolved]
  - Grip strength decreased [Recovered/Resolved]
  - Vomiting [Recovered/Resolved]
  - Postural orthostatic tachycardia syndrome [Not Recovered/Not Resolved]
  - Joint effusion [Recovered/Resolved]
  - Weight decreased [Recovered/Resolved]

NARRATIVE: CASE EVENT DATE: 2013
